FAERS Safety Report 5586982-3 (Version None)
Quarter: 2008Q1

REPORT INFORMATION
  Report Type: 
  Country: None (occurrence: None)
  Receive Date: 20080110
  Receipt Date: 20071231
  Transmission Date: 20080703
  Serious: Yes (Hospitalization)
  Sender: FDA-Public Use
  Company Number: MK-ROCHE-539643

PATIENT
  Sex: Male

DRUGS (1)
  1. PEG-INTERFERON A-2A (RO 25-8310) [Suspect]
     Indication: HEPATITIS C
     Route: 058

REACTIONS (1)
  - PERICARDITIS [None]
